FAERS Safety Report 17191471 (Version 2)
Quarter: 2020Q1

REPORT INFORMATION
  Report Type: Spontaneous
  Country: US (occurrence: US)
  Receive Date: 20191223
  Receipt Date: 20200218
  Transmission Date: 20200409
  Serious: No
  Sender: FDA-Public Use
  Company Number: US-PFIZER INC-2019549392

PATIENT
  Age: 60 Year
  Sex: Male
  Weight: 131.52 kg

DRUGS (1)
  1. SILDENAFIL CITRATE. [Suspect]
     Active Substance: SILDENAFIL CITRATE
     Indication: ERECTILE DYSFUNCTION
     Dosage: 100 MG, 2-3 PER WEEK
     Dates: start: 201701

REACTIONS (2)
  - Back pain [Unknown]
  - Headache [Recovered/Resolved]
